FAERS Safety Report 7558830-3 (Version None)
Quarter: 2011Q2

REPORT INFORMATION
  Report Type: 
  Country: None (occurrence: None)
  Receive Date: 20110621
  Receipt Date: 20110607
  Transmission Date: 20111010
  Serious: Yes (Hospitalization)
  Sender: FDA-Public Use
  Company Number: US-ROCHE-783253

PATIENT
  Sex: Male

DRUGS (4)
  1. BEVACIZUMAB [Suspect]
     Indication: NON-SMALL CELL LUNG CANCER
     Dosage: OVER 30-90 MINS ON DAY 1 (CYCLES 1-3); LAST DOSE PRIOR TO SAE: 27 OCTOBER 2010
     Route: 042
     Dates: start: 20101027
  2. BEVACIZUMAB [Suspect]
     Dosage: OVER 30-90 MINS ON DAY 1; AFTER CYCLE 4 FOR UPTO 1 YEAR
     Route: 042
  3. VINORELBINE [Suspect]
     Indication: NON-SMALL CELL LUNG CANCER
     Dosage: ROUTE: INTRAVENOUS PUSH; OVER 10 MINS ON DAYS 1 AND 8; LAST DOSE PRIOR TO SAE: 27 OCTOBER 2010
     Route: 042
     Dates: start: 20101027
  4. CISPLATIN [Suspect]
     Indication: NON-SMALL CELL LUNG CANCER
     Dosage: OVER 60 MIN ON DAY 1
     Route: 042
     Dates: start: 20101027

REACTIONS (2)
  - THROMBOSIS [None]
  - COUGH [None]
